FAERS Safety Report 5196123-2 (Version None)
Quarter: 2006Q4

REPORT INFORMATION
  Report Type: 
  Country: None (occurrence: None)
  Receive Date: 20061222
  Receipt Date: 20061207
  Transmission Date: 20070319
  Serious: Yes (Other)
  Sender: FDA-Public Use
  Company Number: 2006RR-04846

PATIENT
  Age: 31 Year
  Sex: Female
  Weight: 68.9 kg

DRUGS (4)
  1. ACYCLOVIR [Suspect]
     Indication: HERPES ZOSTER
     Dosage: 800 MG, Q4H, ORAL
     Route: 048
     Dates: start: 20061016, end: 20061017
  2. ACETAMINOPHEN [Concomitant]
  3. CODEINE PHOSPHATE (CODEINE PHOSPHATE) [Concomitant]
  4. ORLISTAT [Concomitant]

REACTIONS (1)
  - DIARRHOEA HAEMORRHAGIC [None]
